FAERS Safety Report 7683091-4 (Version None)
Quarter: 2011Q3

REPORT INFORMATION
  Report Type: 
  Country: None (occurrence: None)
  Receive Date: 20110815
  Receipt Date: 20110802
  Transmission Date: 20111222
  Serious: Yes (Other)
  Sender: FDA-Public Use
  Company Number: CA-ELI_LILLY_AND_COMPANY-CA201108000712

PATIENT
  Sex: Male

DRUGS (11)
  1. HALOPERIDOL [Concomitant]
  2. LOXAPINE HCL [Concomitant]
  3. SEROQUEL [Concomitant]
  4. ZYPREXA [Suspect]
     Indication: SCHIZOPHRENIA
     Dosage: 5 MG, EACH EVENING
     Dates: start: 20030901
  5. ATIVAN [Concomitant]
  6. MIRTAZAPINE [Concomitant]
  7. ZYPREXA [Suspect]
     Dosage: 10 MG, EACH EVENING
  8. ZYPREXA [Suspect]
     Dosage: 20 MG, EACH EVENING
  9. CELEXA [Concomitant]
  10. PAXIL [Concomitant]
  11. CLONAZEPAM [Concomitant]

REACTIONS (7)
  - TYPE 2 DIABETES MELLITUS [None]
  - PALPITATIONS [None]
  - BLOOD TRIGLYCERIDES INCREASED [None]
  - SUPRAVENTRICULAR TACHYCARDIA [None]
  - CARDIAC MURMUR [None]
  - HYPERTENSION [None]
  - ANGINA PECTORIS [None]
